FAERS Safety Report 20008339 (Version 3)
Quarter: 2023Q1

REPORT INFORMATION
  Report Type: Spontaneous
  Country: US (occurrence: None)
  Receive Date: 20211029
  Receipt Date: 20230307
  Transmission Date: 20230417
  Serious: Yes (Hospitalization)
  Sender: FDA-Public Use
  Company Number: US-ULTRAGENYX PHARMACEUTICAL INC.-US-UGNX-21-00244

PATIENT
  Sex: Female

DRUGS (2)
  1. DOJOLVI [Suspect]
     Active Substance: TRIHEPTANOIN
     Indication: Very long-chain acyl-coenzyme A dehydrogenase deficiency
     Dosage: VIA G-TUBE, 5 ML, FIVE TIMES DAILY
     Dates: start: 20210605
  2. DOJOLVI [Suspect]
     Active Substance: TRIHEPTANOIN
     Dosage: 7.4 ML VIA G-TUBE, FIVE TIMES DAILY
     Dates: start: 20210605

REACTIONS (2)
  - Device malfunction [Unknown]
  - Device malfunction [Unknown]
